FAERS Safety Report 22209645 (Version 1)
Quarter: 2023Q2

REPORT INFORMATION
  Report Type: Report from Study
  Country: US (occurrence: US)
  Receive Date: 20230414
  Receipt Date: 20230414
  Transmission Date: 20230721
  Serious: Yes (Hospitalization, Other)
  Sender: FDA-Public Use
  Company Number: US-ABBVIE-4726794

PATIENT
  Sex: Male

DRUGS (3)
  1. RINVOQ [Suspect]
     Active Substance: UPADACITINIB
     Indication: Rheumatoid arthritis
     Dosage: FORM STRENGTH: 115 MILLIGRAM
     Route: 048
     Dates: start: 20191209, end: 2022
  2. RINVOQ [Suspect]
     Active Substance: UPADACITINIB
     Indication: Rheumatoid arthritis
     Dosage: FORM STRENGTH: 15 MILLIGRAM
     Route: 048
     Dates: start: 202301
  3. FUROSEMIDE [Suspect]
     Active Substance: FUROSEMIDE
     Indication: Blood test abnormal
     Dosage: DURATION TEXT: 6-8 MONTHS
     Route: 065
     Dates: start: 2022, end: 2023

REACTIONS (5)
  - Coronary artery occlusion [Recovered/Resolved]
  - Myocardial infarction [Recovered/Resolved]
  - Blood test abnormal [Recovered/Resolved]
  - Arthralgia [Recovered/Resolved]
  - Hand deformity [Unknown]

NARRATIVE: CASE EVENT DATE: 20220101
